FAERS Safety Report 4411137-5 (Version None)
Quarter: 2004Q2

REPORT INFORMATION
  Report Type: 
  Country: None (occurrence: None)
  Receive Date: 20040630
  Receipt Date: 20040324
  Transmission Date: 20050107
  Serious: No
  Sender: FDA-Public Use
  Company Number: 03P-163-0235668-00

PATIENT
  Age: 63 Year
  Sex: Female
  Weight: 59.4212 kg

DRUGS (10)
  1. HUMIRA [Suspect]
     Indication: RHEUMATOID ARTHRITIS
     Dosage: 40 MG, 1 IN 2 WK, SUBCUTANEOUS;40 MG, SUBCUTANEOUS;40 MG, 1 IN 1 WK, SUBCUTANEOUS
     Route: 058
     Dates: start: 20030101, end: 20030603
  2. HUMIRA [Suspect]
     Indication: RHEUMATOID ARTHRITIS
     Dosage: 40 MG, 1 IN 2 WK, SUBCUTANEOUS;40 MG, SUBCUTANEOUS;40 MG, 1 IN 1 WK, SUBCUTANEOUS
     Route: 058
     Dates: start: 20030701, end: 20031025
  3. HUMIRA [Suspect]
     Indication: RHEUMATOID ARTHRITIS
     Dosage: 40 MG, 1 IN 2 WK, SUBCUTANEOUS;40 MG, SUBCUTANEOUS;40 MG, 1 IN 1 WK, SUBCUTANEOUS
     Route: 058
     Dates: start: 20031026
  4. PROPACET 100 [Concomitant]
  5. METHOTREXATE [Concomitant]
  6. AMLODIPINE BESYLATE [Concomitant]
  7. HYZAAR [Concomitant]
  8. LOSARTAN POTASSIUM [Concomitant]
  9. ATENOLOL [Concomitant]
  10. POTASSIUM [Concomitant]

REACTIONS (8)
  - ARTHRALGIA [None]
  - CYSTITIS [None]
  - DRUG INEFFECTIVE [None]
  - ERYTHEMA [None]
  - FUNGAL INFECTION [None]
  - NIGHT SWEATS [None]
  - RASH PRURITIC [None]
  - WEIGHT DECREASED [None]
